FAERS Safety Report 7065784-5 (Version None)
Quarter: 2010Q4

REPORT INFORMATION
  Report Type: 
  Country: None (occurrence: None)
  Receive Date: 20101027
  Receipt Date: 20101026
  Transmission Date: 20110411
  Serious: Yes (Disabling)
  Sender: FDA-Public Use
  Company Number: JP-AMGEN-JPNCT2010001237

PATIENT
  Age: 60 Year
  Sex: Male
  Weight: 57 kg

DRUGS (12)
  1. PANITUMUMAB [Suspect]
     Indication: COLORECTAL CANCER
     Dosage: UNK
     Dates: start: 20100917, end: 20101005
  2. IRINOTECAN HYDROCHLORIDE [Concomitant]
     Indication: COLORECTAL CANCER
     Route: 041
     Dates: start: 20100917, end: 20100921
  3. FLUOROURACIL [Concomitant]
     Indication: COLORECTAL CANCER
     Route: 040
     Dates: start: 20100917, end: 20100921
  4. FLUOROURACIL [Concomitant]
     Route: 041
     Dates: start: 20100917, end: 20100921
  5. CALCIUM LEVOFOLINATE [Concomitant]
     Indication: COLORECTAL CANCER
     Route: 041
     Dates: start: 20100917, end: 20100921
  6. ANTIHISTAMINES [Concomitant]
     Indication: PROPHYLAXIS
     Route: 065
  7. CORTICOSTEROIDS [Concomitant]
     Indication: PROPHYLAXIS
     Route: 065
  8. KINDAVATE [Concomitant]
     Route: 062
  9. HIRUDOID SOFT [Concomitant]
     Route: 062
  10. HANGE-SHASHIN-TO [Concomitant]
     Route: 048
  11. DECADRON [Concomitant]
     Route: 048
  12. ZOFRAN [Concomitant]
     Route: 048

REACTIONS (2)
  - DERMATITIS [None]
  - NECROTISING FASCIITIS [None]
